FAERS Safety Report 5000845-3 (Version None)
Quarter: 2006Q2

REPORT INFORMATION
  Report Type: 
  Country: None (occurrence: None)
  Receive Date: 20060512
  Receipt Date: 20060509
  Transmission Date: 20061013
  Serious: Yes (Other)
  Sender: FDA-Public Use
  Company Number: US-MERCK-0605USA01797

PATIENT
  Sex: Female

DRUGS (4)
  1. ZOCOR [Suspect]
     Route: 065
  2. LAMICTAL [Concomitant]
     Route: 065
  3. TEGRETOL [Concomitant]
     Route: 065
  4. KEPPRA [Concomitant]
     Route: 065

REACTIONS (1)
  - CONVULSION [None]
